FAERS Safety Report 9392647 (Version 2)
Quarter: 2013Q3

REPORT INFORMATION
  Report Type: Spontaneous
  Country: ZA (occurrence: ZA)
  Receive Date: 20130710
  Receipt Date: 20130712
  Transmission Date: 20140515
  Serious: Yes (Hospitalization)
  Sender: FDA-Public Use
  Company Number: PHHY2013ZA070220

PATIENT
  Sex: Male

DRUGS (3)
  1. ONBREZ [Suspect]
     Indication: ASTHMA
     Dosage: 150 UG, UNK
     Dates: start: 20130527
  2. ONBREZ [Suspect]
     Indication: OFF LABEL USE
  3. CORTICOSTEROIDS [Concomitant]
     Indication: CHRONIC OBSTRUCTIVE PULMONARY DISEASE

REACTIONS (2)
  - Lower respiratory tract infection [Recovering/Resolving]
  - Acute respiratory failure [Unknown]
